FAERS Safety Report 6852605-6 (Version None)
Quarter: 2010Q3

REPORT INFORMATION
  Report Type: 
  Country: None (occurrence: None)
  Receive Date: 20100717
  Receipt Date: 20071126
  Transmission Date: 20110219
  Serious: No
  Sender: FDA-Public Use
  Company Number: US-PFIZER INC-2007098764

PATIENT
  Sex: Female
  Weight: 43.2 kg

DRUGS (7)
  1. CHANTIX [Suspect]
     Indication: SMOKING CESSATION THERAPY
     Route: 048
     Dates: start: 20071113, end: 20071119
  2. ANASTROZOLE [Concomitant]
     Dates: start: 20020101
  3. LIPITOR [Concomitant]
     Dates: start: 20020101
  4. ATACAND [Concomitant]
     Dates: start: 20020101
  5. CARTIA XT [Concomitant]
     Dates: start: 20020101
  6. ALLEGRA [Concomitant]
     Dates: start: 20020101
  7. PROZAC [Concomitant]
     Dates: start: 20020101

REACTIONS (1)
  - FEELING HOT [None]
